FAERS Safety Report 19746195 (Version 3)
Quarter: 2021Q3

REPORT INFORMATION
  Report Type: Other
  Country: US (occurrence: US)
  Receive Date: 20210826
  Receipt Date: 20210923
  Transmission Date: 20211014
  Serious: Yes (Other)
  Sender: FDA-Public Use
  Company Number: US-NEUROCRINE BIOSCIENCES INC.-2021NBI04734

PATIENT

DRUGS (7)
  1. ONGENTYS [Suspect]
     Active Substance: OPICAPONE
     Indication: PARKINSON^S DISEASE
     Dosage: 25 MILLIGRAM, QD
     Route: 048
     Dates: start: 2021
  2. CARBIDOPA/LEVODOPA [Concomitant]
     Active Substance: CARBIDOPA\LEVODOPA
     Dosage: 1 DOSAGE FORM, 5 TIMES A DAY
     Route: 048
  3. ONGENTYS [Suspect]
     Active Substance: OPICAPONE
     Dosage: 50 MILLIGRAM
     Route: 065
     Dates: start: 2021, end: 2021
  4. ONGENTYS [Suspect]
     Active Substance: OPICAPONE
     Dosage: 25 MILLIGRAM
     Route: 065
  5. PRAMIPEXOLE DIHYDROCHLORIDE. [Concomitant]
     Active Substance: PRAMIPEXOLE DIHYDROCHLORIDE
     Dosage: 1 MILLIGRAM, TID
     Route: 048
  6. CARBIDOPA/LEVODOPA ER [Concomitant]
     Active Substance: CARBIDOPA\LEVODOPA
     Dosage: 1 DOSAGE FORM, 5 TIMES A DAY
  7. BABY ASPIRIN [Concomitant]
     Active Substance: ASPIRIN
     Dosage: UNK

REACTIONS (3)
  - Hallucination, visual [Recovered/Resolved]
  - Confusional state [Recovered/Resolved]
  - Dyskinesia [Recovered/Resolved]

NARRATIVE: CASE EVENT DATE: 2021
